FAERS Safety Report 16662464 (Version 2)
Quarter: 2020Q1

REPORT INFORMATION
  Report Type: Report from Study
  Country: TW (occurrence: TW)
  Receive Date: 20190802
  Receipt Date: 20200129
  Transmission Date: 20200409
  Serious: No
  Sender: FDA-Public Use
  Company Number: TW-EXELIXIS-CABO-18017886

PATIENT
  Age: 60 Year
  Sex: Female

DRUGS (2)
  1. CABOMETYX [Suspect]
     Active Substance: CABOZANTINIB S-MALATE
     Dosage: 40 MG, QD
     Route: 048
  2. CABOMETYX [Suspect]
     Active Substance: CABOZANTINIB S-MALATE
     Indication: RENAL CELL CARCINOMA
     Dosage: 60 MG, QD
     Route: 048
     Dates: start: 20181218

REACTIONS (5)
  - Joint swelling [Not Recovered/Not Resolved]
  - Pruritus [Recovering/Resolving]
  - Blood pressure increased [Recovering/Resolving]
  - Joint stiffness [Not Recovered/Not Resolved]
  - Diarrhoea [Recovering/Resolving]

NARRATIVE: CASE EVENT DATE: 201812
